FAERS Safety Report 5600222-8 (Version None)
Quarter: 2008Q1

REPORT INFORMATION
  Report Type: 
  Country: None (occurrence: None)
  Receive Date: 20080117
  Receipt Date: 20080117
  Transmission Date: 20080703
  Serious: Yes (Life-Threatening)
  Sender: FDA-Public Use
  Company Number: None

PATIENT
  Age: 58 Year
  Sex: Male
  Weight: 99 kg

DRUGS (2)
  1. SIMVASTATIN [Suspect]
     Indication: BLOOD CHOLESTEROL INCREASED
     Dosage: 40MG ONCE DAILY PO { 2 DAYS-PREV ON LIPITOR-
     Route: 048
  2. SIMVASTATIN [Suspect]
     Indication: BLOOD CHOLESTEROL INCREASED
     Dosage: 20MG - 1/2 TAB - ONCE DAILY PO { 2 DAYS-PREV ON LOVASTA
     Route: 048

REACTIONS (3)
  - CARDIAC ARREST [None]
  - MEMORY IMPAIRMENT [None]
  - VENTRICULAR FIBRILLATION [None]
